FAERS Safety Report 5719896-6 (Version None)
Quarter: 2008Q2

REPORT INFORMATION
  Report Type: 
  Country: None (occurrence: None)
  Receive Date: 20080428
  Receipt Date: 20071121
  Transmission Date: 20081010
  Serious: No
  Sender: FDA-Public Use
  Company Number: A0695611A

PATIENT
  Age: 61 Year
  Sex: Female

DRUGS (7)
  1. ONDANSETRON [Suspect]
     Indication: PROPHYLAXIS OF NAUSEA AND VOMITING
     Dosage: 8MG THREE TIMES PER DAY
     Route: 048
     Dates: start: 20071113
  2. TYKERB [Suspect]
     Indication: BREAST CANCER
     Dosage: 1250TAB PER DAY
     Route: 048
     Dates: start: 20071113
  3. XELODA [Suspect]
     Indication: BREAST CANCER
     Dosage: 1650MG TWICE PER DAY
     Route: 048
     Dates: start: 20071113
  4. VERAPAMIL [Concomitant]
  5. POTASSIUM CHLORIDE [Concomitant]
  6. FLUOXETINE [Concomitant]
  7. HYDROCHLOROTHIAZIDE [Concomitant]

REACTIONS (6)
  - DIARRHOEA [None]
  - DIZZINESS [None]
  - DRUG INEFFECTIVE [None]
  - HEADACHE [None]
  - NAUSEA [None]
  - VOMITING [None]
